FAERS Safety Report 5542622-0 (Version None)
Quarter: 2007Q4

REPORT INFORMATION
  Report Type: 
  Country: None (occurrence: None)
  Receive Date: 20071206
  Receipt Date: 20071206
  Transmission Date: 20080405
  Serious: Yes (Other)
  Sender: FDA-Public Use
  Company Number: None

PATIENT
  Age: 59 Year
  Sex: Female
  Weight: 72.5755 kg

DRUGS (2)
  1. SERTRALINE HCL [Suspect]
     Indication: DEPRESSION
     Dosage: 50 MG ONCE DAILY PO
     Route: 048
     Dates: start: 20071110, end: 20071204
  2. SERTRALINE HCL [Suspect]
     Indication: MIGRAINE
     Dosage: 50 MG ONCE DAILY PO
     Route: 048
     Dates: start: 20071110, end: 20071204

REACTIONS (4)
  - DRUG INEFFECTIVE [None]
  - HEADACHE [None]
  - PHARMACEUTICAL PRODUCT COMPLAINT [None]
  - THERAPEUTIC RESPONSE UNEXPECTED WITH DRUG SUBSTITUTION [None]
